FAERS Safety Report 15152557 (Version 6)
Quarter: 2018Q4

REPORT INFORMATION
  Report Type: Spontaneous
  Country: US (occurrence: US)
  Receive Date: 20180717
  Receipt Date: 20181031
  Transmission Date: 20190204
  Serious: No
  Sender: FDA-Public Use
  Company Number: US-AMGEN-USASP2018095524

PATIENT
  Age: 45 Year
  Sex: Female
  Weight: 74.39 kg

DRUGS (1)
  1. NEULASTA [Suspect]
     Active Substance: PEGFILGRASTIM
     Indication: BONE MARROW FAILURE
     Dosage: 6 MG, Q2WK
     Route: 058
     Dates: start: 20180627

REACTIONS (4)
  - Wrong technique in product usage process [Unknown]
  - White blood cell count abnormal [Unknown]
  - Incorrect dose administered by device [Unknown]
  - Off label use [Unknown]

NARRATIVE: CASE EVENT DATE: 20180627
